FAERS Safety Report 5241495-3 (Version None)
Quarter: 2007Q1

REPORT INFORMATION
  Report Type: 
  Country: None (occurrence: None)
  Receive Date: 20070220
  Receipt Date: 20070212
  Transmission Date: 20070707
  Serious: Yes (Other)
  Sender: FDA-Public Use
  Company Number: PT-GLAXOSMITHKLINE-B0453064A

PATIENT
  Age: 69 Year
  Sex: Male
  Weight: 70 kg

DRUGS (10)
  1. CLAMOXYL [Suspect]
     Dosage: 1G TWICE PER DAY
     Route: 048
     Dates: start: 20061031, end: 20061107
  2. CLARITHROMYCIN [Suspect]
     Dosage: 1G TWICE PER DAY
     Route: 048
     Dates: start: 20061031, end: 20061107
  3. DOMPERIDONE [Concomitant]
     Indication: GASTRIC DISORDER
     Dosage: 10MG TWICE PER DAY
     Route: 048
     Dates: start: 20061031, end: 20061107
  4. OMEPRAZOLE [Concomitant]
     Indication: GASTRIC DISORDER
     Dosage: 20MG PER DAY
     Route: 048
     Dates: start: 20061031, end: 20061107
  5. ASCORBIC ACID [Concomitant]
     Route: 048
     Dates: end: 20061107
  6. CHLORDIAZEPOXIDE [Concomitant]
     Indication: GASTRIC DISORDER
     Route: 048
     Dates: start: 20050101, end: 20061107
  7. CLIDINIUM BROMIDE [Concomitant]
     Indication: GASTRIC DISORDER
     Route: 048
     Dates: start: 20050101, end: 20061107
  8. RUSCUS ACULEATUS [Concomitant]
     Route: 048
     Dates: end: 20061107
  9. HESPERIDIN METHYL CHALCONE [Concomitant]
     Route: 048
     Dates: end: 20061107
  10. TRIMETAZIDINE DIHYDROCHLORIDE [Concomitant]
     Route: 048
     Dates: start: 20050101, end: 20061107

REACTIONS (5)
  - DYSPHONIA [None]
  - GLOSSODYNIA [None]
  - MUCOSAL INFLAMMATION [None]
  - OEDEMA MOUTH [None]
  - TONGUE OEDEMA [None]
